FAERS Safety Report 5675294-5 (Version None)
Quarter: 2008Q2

REPORT INFORMATION
  Report Type: 
  Country: None (occurrence: None)
  Receive Date: 20080307
  Receipt Date: 20071023
  Transmission Date: 20081010
  Serious: Yes (Hospitalization)
  Sender: FDA-Public Use
  Company Number: US200710002716

PATIENT
  Age: 60 Year
  Sex: Female

DRUGS (1)
  1. GEMZAR [Suspect]
     Indication: OVARIAN CANCER
     Dosage: 1000 MG/M2,
     Dates: start: 20070101

REACTIONS (1)
  - PNEUMONIA [None]
